FAERS Safety Report 9734680 (Version 3)
Quarter: 2014Q1

REPORT INFORMATION
  Report Type: Spontaneous
  Country: IL (occurrence: IL)
  Receive Date: 20131206
  Receipt Date: 20140106
  Transmission Date: 20141002
  Serious: Yes (Life-Threatening, Hospitalization, Other)
  Sender: FDA-Public Use
  Company Number: IL-AMGEN-ISRSP2013084991

PATIENT
  Age: 52 Year
  Sex: Female

DRUGS (8)
  1. VECTIBIX [Suspect]
     Indication: PRODUCT USED FOR UNKNOWN INDICATION
     Dosage: 6 MG/KG, ONCE EVERY TWO WEEKS
     Route: 065
     Dates: start: 20131015
  2. IRINOTECAN                         /01280202/ [Concomitant]
     Dosage: UNK
     Dates: start: 20131017
  3. PROCOR                             /00133102/ [Concomitant]
     Dosage: UNK
  4. DERALIN                            /00030002/ [Concomitant]
     Dosage: UNK
  5. FOLINIC ACID [Concomitant]
     Dosage: UNK
  6. 5 FU [Concomitant]
     Dosage: UNK
  7. OXALIPLATIN [Concomitant]
     Dosage: UNK
  8. ERBITUX [Concomitant]
     Indication: RECTAL CANCER
     Dosage: UNK

REACTIONS (6)
  - Ventricular fibrillation [Unknown]
  - Atrial fibrillation [Recovered/Resolved]
  - Lower gastrointestinal haemorrhage [Unknown]
  - Presyncope [Unknown]
  - Asthenia [Unknown]
  - Rash pustular [Unknown]
